FAERS Safety Report 7788842-6 (Version None)
Quarter: 2011Q3

REPORT INFORMATION
  Report Type: 
  Country: None (occurrence: None)
  Receive Date: 20110928
  Receipt Date: 20110920
  Transmission Date: 20111222
  Serious: Yes (Other)
  Sender: FDA-Public Use
  Company Number: AUR-APL-2011-05145

PATIENT
  Age: 21 Year
  Sex: Female

DRUGS (2)
  1. TOPIRAMATE [Suspect]
     Indication: MIGRAINE
     Dosage: 200; 250  MG (100 MG, 2 IN 1 D)
     Dates: end: 20110206
  2. TOPIRAMATE [Suspect]
     Indication: MIGRAINE
     Dosage: 200; 250  MG (100 MG, 2 IN 1 D)
     Dates: start: 20100501

REACTIONS (3)
  - DRUG INEFFECTIVE [None]
  - DISSOCIATIVE DISORDER [None]
  - SERUM SEROTONIN INCREASED [None]
